FAERS Safety Report 8769666 (Version 12)
Quarter: 2017Q4

REPORT INFORMATION
  Report Type: Spontaneous
  Country: US (occurrence: US)
  Receive Date: 20120905
  Receipt Date: 20171215
  Transmission Date: 20180321
  Serious: Yes (Hospitalization, Disabling, Other)
  Sender: FDA-Public Use
  Company Number: US-009507513-1208USA009426

PATIENT
  Sex: Female
  Weight: 191.8 kg

DRUGS (9)
  1. FOSAMAX [Suspect]
     Active Substance: ALENDRONATE SODIUM
     Indication: OSTEOPOROSIS
     Dosage: 70 MG, QW
     Route: 048
     Dates: start: 1995
  2. ALENDRONATE SODIUM. [Suspect]
     Active Substance: ALENDRONATE SODIUM
     Indication: OSTEOPOROSIS
     Route: 065
  3. CYCLOSPORINE. [Concomitant]
     Active Substance: CYCLOSPORINE
     Dosage: 50 MG, UNK
     Route: 048
  4. CYCLOSPORINE. [Concomitant]
     Active Substance: CYCLOSPORINE
     Indication: TRANSPLANT REJECTION
     Dosage: 100 MG, QAM
     Route: 048
     Dates: start: 199408
  5. PREDNISONE. [Concomitant]
     Active Substance: PREDNISONE
     Indication: RENAL TRANSPLANT
     Dosage: 5 MG, QD
     Route: 048
     Dates: start: 1981
  6. PREDNISONE. [Concomitant]
     Active Substance: PREDNISONE
     Indication: SYSTEMIC LUPUS ERYTHEMATOSUS
  7. ALENDRONATE SODIUM. [Suspect]
     Active Substance: ALENDRONATE SODIUM
     Indication: OSTEOPOROSIS
     Dosage: 70 MG, UNK
     Route: 048
     Dates: end: 2012
  8. IMURAN [Concomitant]
     Active Substance: AZATHIOPRINE
     Indication: TRANSPLANT REJECTION
     Dosage: 50 MG, QD, IN THE EVENING
     Route: 065
     Dates: start: 199408
  9. CORTICOSTEROIDS (UNSPECIFIED) [Concomitant]
     Active Substance: UNSPECIFIED INGREDIENT
     Dosage: UNK
     Route: 065
     Dates: start: 198104

REACTIONS (34)
  - Femur fracture [Recovered/Resolved]
  - Cerebrovascular accident [Unknown]
  - Fall [Unknown]
  - Fall [Unknown]
  - Atrial fibrillation [Unknown]
  - Gastrooesophageal reflux disease [Unknown]
  - Upper limb fracture [Unknown]
  - Upper limb fracture [Unknown]
  - Fall [Unknown]
  - Hand fracture [Recovered/Resolved]
  - Hypertension [Unknown]
  - Thoracic vertebral fracture [Unknown]
  - Sacroiliitis [Unknown]
  - Cholecystectomy [Unknown]
  - Low turnover osteopathy [Unknown]
  - Rotator cuff repair [Unknown]
  - Rib fracture [Unknown]
  - Ovarian failure [Unknown]
  - Skin irritation [Unknown]
  - Constipation [Unknown]
  - Osteoarthritis [Unknown]
  - Fall [Unknown]
  - Wrist fracture [Unknown]
  - Ulna fracture [Recovered/Resolved]
  - Fall [Unknown]
  - Elbow operation [Unknown]
  - Hyperlipidaemia [Unknown]
  - Humerus fracture [Unknown]
  - Intervertebral disc degeneration [Unknown]
  - Spinal fracture [Unknown]
  - Osteopenia [Unknown]
  - Plantar fasciitis [Unknown]
  - Back pain [Unknown]
  - Back disorder [Unknown]

NARRATIVE: CASE EVENT DATE: 2000
